FAERS Safety Report 7439294-7 (Version None)
Quarter: 2011Q2

REPORT INFORMATION
  Report Type: 
  Country: None (occurrence: None)
  Receive Date: 20110427
  Receipt Date: 20091122
  Transmission Date: 20111010
  Serious: Yes (Death, Other)
  Sender: FDA-Public Use
  Company Number: US-BAYER-200940226NA

PATIENT
  Age: 80 Year
  Sex: Male
  Weight: 60.2 kg

DRUGS (25)
  1. HYDROCHLOROTHIAZIDE [Concomitant]
     Dosage: 12.5 MG, QD
     Route: 048
     Dates: start: 20031211
  2. AMIODARONE [Concomitant]
     Dosage: VARIED
  3. LIDOCAINE [Concomitant]
     Dosage: 3 G, PUMP
     Dates: start: 20071030, end: 20071030
  4. HEPARIN [Concomitant]
     Dosage: 24 KU
     Route: 042
     Dates: start: 20071030
  5. ZOSYN [Concomitant]
     Dosage: RENAL DOSING
     Route: 042
     Dates: start: 20071028
  6. CRYOPRECIPITATES [Concomitant]
     Dosage: 10 U, UNK
     Route: 042
     Dates: start: 20071030, end: 20071030
  7. HEPARIN [Concomitant]
     Dosage: 5000 U, TID
     Route: 058
  8. AMICAR [Concomitant]
     Dosage: 6 G, UNK
     Route: 042
     Dates: start: 20071030
  9. PLASMA [Concomitant]
     Dosage: 6 U, UNK
     Route: 042
     Dates: start: 20071030
  10. TRASYLOL [Suspect]
     Indication: MITRAL VALVE REPAIR
  11. ARICEPT [Concomitant]
     Dosage: 5 MG, QD
     Route: 048
     Dates: start: 20050718
  12. ADALAT CC [Concomitant]
     Dosage: 20 MG, QD
     Route: 048
     Dates: start: 20030310
  13. DOPAMINE HCL [Concomitant]
     Dosage: VARIED
     Route: 042
  14. VANCOMYCIN [Concomitant]
  15. CARDIOPLEGIA [Concomitant]
     Dosage: 2900 ML, PUMP
     Dates: start: 20071030, end: 20071030
  16. PRIMACOR [Concomitant]
     Dosage: UNK
     Route: 042
     Dates: start: 20071030
  17. MORPHINE [Concomitant]
     Dosage: 2 MG, Q2HR, PRN
     Route: 042
  18. PROTAMINE SULFATE [Concomitant]
     Dosage: 30 MG, UNK
     Route: 042
     Dates: start: 20071030
  19. INSULIN [Concomitant]
     Dosage: UNK
     Route: 042
     Dates: start: 20071030
  20. TRASYLOL [Suspect]
     Indication: CORONARY ARTERY BYPASS
     Route: 042
     Dates: start: 20071030
  21. ALBUMIN (HUMAN) [Concomitant]
     Dosage: 100 ML, PUMP
     Dates: start: 20071030, end: 20071030
  22. BUMEX [Concomitant]
     Dosage: VARIED
     Route: 042
     Dates: start: 20071025
  23. HEPARIN [Concomitant]
     Dosage: 10000 UNITS, PUMP
     Dates: start: 20071030, end: 20071030
  24. NESIRITIDE [Concomitant]
     Dosage: UNK
     Route: 042
     Dates: start: 20071030
  25. RED BLOOD CELLS [Concomitant]
     Dosage: 2 U, UNK
     Route: 042
     Dates: start: 20071030

REACTIONS (13)
  - RENAL INJURY [None]
  - STRESS [None]
  - ANXIETY [None]
  - FEAR [None]
  - PAIN [None]
  - INJURY [None]
  - UNEVALUABLE EVENT [None]
  - ANHEDONIA [None]
  - MULTI-ORGAN FAILURE [None]
  - RENAL FAILURE [None]
  - DEATH [None]
  - RENAL IMPAIRMENT [None]
  - EMOTIONAL DISTRESS [None]
